FAERS Safety Report 10578650 (Version 1)
Quarter: 2014Q4

REPORT INFORMATION
  Report Type: Spontaneous
  Country: US (occurrence: None)
  Receive Date: 20141111
  Receipt Date: 20141111
  Transmission Date: 20150529
  Serious: No
  Sender: FDA-Public Use
  Company Number: None

PATIENT
  Age: 52 Year
  Sex: Female
  Weight: 75.3 kg

DRUGS (1)
  1. METHYLPHENIDATE ER 18 MG [Suspect]
     Active Substance: METHYLPHENIDATE
     Indication: ATTENTION DEFICIT/HYPERACTIVITY DISORDER
     Dosage: ONCE DAILY TAKEN BY MOUTH
     Route: 048
     Dates: start: 20141104, end: 20141110

REACTIONS (5)
  - Fatigue [None]
  - Product colour issue [None]
  - Product substitution issue [None]
  - Product shape issue [None]
  - Product quality issue [None]

NARRATIVE: CASE EVENT DATE: 20141110
